FAERS Safety Report 12269611 (Version 3)
Quarter: 2016Q2

REPORT INFORMATION
  Report Type: Spontaneous
  Country: GB (occurrence: GB)
  Receive Date: 20160414
  Receipt Date: 20160505
  Transmission Date: 20160815
  Serious: Yes (Death)
  Sender: FDA-Public Use
  Company Number: GB-ABBVIE-16P-167-1605264-00

PATIENT
  Sex: Male

DRUGS (2)
  1. ZOLADEX [Suspect]
     Active Substance: GOSERELIN ACETATE
     Indication: PRODUCT USED FOR UNKNOWN INDICATION
     Dosage: UNK
     Route: 065
  2. PROSTAP SR DCS [Suspect]
     Active Substance: LEUPROLIDE ACETATE
     Indication: PRODUCT USED FOR UNKNOWN INDICATION
     Dosage: 3.75 MG, MONTHLY
     Route: 065

REACTIONS (4)
  - Dermatitis [Not Recovered/Not Resolved]
  - Death [Fatal]
  - Pruritus [Unknown]
  - Skin irritation [Unknown]

NARRATIVE: CASE EVENT DATE: 2011
